FAERS Safety Report 8923433 (Version 2)
Quarter: 2013Q2

REPORT INFORMATION
  Report Type: Spontaneous
  Country: GB (occurrence: None)
  Receive Date: 20121114
  Receipt Date: 20130603
  Transmission Date: 20140414
  Serious: Yes (Hospitalization)
  Sender: FDA-Public Use
  Company Number: DKLU1086192

PATIENT
  Age: 5 Year
  Sex: Male
  Weight: 15 kg

DRUGS (12)
  1. COSMEGEN [Suspect]
     Indication: NEOPLASM MALIGNANT
     Dosage: 1 MG MILLIGRAM(S), 1/1 CYCLICAL, INTRAVENOUS (NOT OTHERWISE SPECIFIED)
     Route: 042
     Dates: start: 20120720
  2. DOXORUBICIN HYDROCHLORIDE [Suspect]
     Indication: NEOPLASM MALIGNANT
     Dosage: 20 MG MILLIGRAM(S), DAY 1 AND 2 OF EACH CYCLE, INTRAVENOUS (NOT OTHERWISE SPECIFIED)
     Route: 042
     Dates: start: 20120721
  3. IFOSFAMIDE [Suspect]
     Indication: NEOPLASM MALIGNANT
     Dosage: 2 G GRAM(S), DAY 1 AND 2 OF EACH CYCLE, INTRAVENOUS (NOT OTHERWISE SPECIFIED)
     Route: 042
     Dates: start: 20120720
  4. VINCRISTINE SULFATE [Suspect]
     Indication: NEOPLASM MALIGNANT
     Dosage: 1 MG MILLIGRAM(S), 1 IN 1 WK, INTRAVENOUS (NOT OTHERWISE SPECIFIED)
     Route: 042
     Dates: start: 20120720
  5. CHLORHEXEDINE (CHLORHEXIDINE) [Concomitant]
  6. CO-TRIMOXAZOLE (CO-TRIMOXAZOLE) [Concomitant]
  7. GRANISETRON (GRANISETRON) [Concomitant]
  8. METOCLOPRAMIDE (METOCLOPRAMIDE) [Concomitant]
  9. MOVICOL [Concomitant]
  10. ORAMORPH (MORPHINE SULFATE PENTAHYDRATE) [Concomitant]
  11. PARACETAMOL (PARACETAMOL) [Concomitant]
  12. ORAMORPH (MORPHINE SULFATE PENTAHDRATE) [Concomitant]

REACTIONS (2)
  - Hypophagia [None]
  - Febrile neutropenia [None]
